FAERS Safety Report 8804574 (Version 1)
Quarter: 2012Q4

REPORT INFORMATION
  Report Type: 
  Country: IN (occurrence: IN)
  Receive Date: 20120924
  Receipt Date: 20120924
  Transmission Date: 20130627
  Serious: Yes (Hospitalization, Other)
  Sender: FDA-Public Use
  Company Number: IN-BAYER-2012-096140

PATIENT
  Age: 40 Year
  Sex: Male

DRUGS (4)
  1. ACETYLSALICYLIC ACID({=100 MG) [Suspect]
     Indication: VISUAL IMPAIRMENT
     Dosage: 75 mg, QD
     Route: 048
  2. ACETYLSALICYLIC ACID({=100 MG) [Suspect]
     Indication: CEREBRAL INFARCTION
  3. WARFARIN [Suspect]
     Indication: VISUAL IMPAIRMENT
     Route: 048
  4. WARFARIN [Suspect]
     Indication: CEREBRAL INFARCTION

REACTIONS (7)
  - Coagulopathy [Recovered/Resolved]
  - Shock [Recovered/Resolved]
  - Oesophageal ulcer [Recovered/Resolved]
  - Renal vasculitis [None]
  - Cutaneous vasculitis [None]
  - Anaemia haemolytic autoimmune [None]
  - Antiphospholipid syndrome [None]
